FAERS Safety Report 21014970 (Version 1)
Quarter: 2022Q2

REPORT INFORMATION
  Report Type: Spontaneous
  Country: US (occurrence: US)
  Receive Date: 20220628
  Receipt Date: 20220628
  Transmission Date: 20220721
  Serious: Yes (Other)
  Sender: FDA-Public Use
  Company Number: US-CELLTRION INC.-2022US009859

PATIENT

DRUGS (6)
  1. TRUXIMA [Suspect]
     Active Substance: RITUXIMAB-ABBS
     Indication: Mantle cell lymphoma
     Dosage: 1200 MG, QUARTERLY 4 WEEKS
     Dates: start: 20220519
  2. TRUXIMA [Suspect]
     Active Substance: RITUXIMAB-ABBS
     Dosage: 1000 MG, QUARTERLY 4 WEEKS
     Dates: start: 20220616
  3. BENDEKA [Concomitant]
     Active Substance: BENDAMUSTINE HYDROCHLORIDE
     Indication: Mantle cell lymphoma
     Dosage: 276 MG, QUARTERLY FOR 4 WEEKS
     Dates: start: 20220519
  4. BENDEKA [Concomitant]
     Active Substance: BENDAMUSTINE HYDROCHLORIDE
     Dosage: 276 MG, QUARTERLY FOR 4 WEEKS
     Dates: start: 20220520
  5. BENDEKA [Concomitant]
     Active Substance: BENDAMUSTINE HYDROCHLORIDE
     Dosage: 276 MG, QUARTERLY FOR 4 WEEKS
     Dates: start: 20220616
  6. BENDEKA [Concomitant]
     Active Substance: BENDAMUSTINE HYDROCHLORIDE
     Dosage: 276 MG, QUARTERLY FOR 4 WEEKS
     Dates: start: 20220617

REACTIONS (2)
  - Mantle cell lymphoma [Unknown]
  - Off label use [Unknown]
